FAERS Safety Report 13156769 (Version 2)
Quarter: 2017Q1

REPORT INFORMATION
  Report Type: Spontaneous
  Country: AT (occurrence: AT)
  Receive Date: 20170126
  Receipt Date: 20170217
  Transmission Date: 20170428
  Serious: Yes (Other)
  Sender: FDA-Public Use
  Company Number: AT-AMGEN-AUTSP2017011702

PATIENT
  Age: 67 Year
  Sex: Male
  Weight: 63.9 kg

DRUGS (40)
  1. OXALIPLATIN. [Suspect]
     Active Substance: OXALIPLATIN
     Dosage: 116 MG, UNK
     Route: 042
     Dates: start: 20161213
  2. ZANTAC [Concomitant]
     Active Substance: RANITIDINE HYDROCHLORIDE
  3. LEUCOVORIN. [Suspect]
     Active Substance: LEUCOVORIN
     Indication: METASTASES TO LIVER
     Dosage: UNK
     Route: 042
     Dates: start: 20161011
  4. LEUCOVORIN. [Suspect]
     Active Substance: LEUCOVORIN
     Dosage: 280 MG, UNK
     Route: 042
     Dates: start: 20161122
  5. 5-FU [Suspect]
     Active Substance: FLUOROURACIL
     Indication: COLON CANCER
     Dosage: UNK
     Route: 042
     Dates: start: 201511, end: 201604
  6. 5-FU [Suspect]
     Active Substance: FLUOROURACIL
     Dosage: 547 MG, UNK
     Route: 040
     Dates: start: 20161122
  7. 5-FU [Suspect]
     Active Substance: FLUOROURACIL
     Dosage: 553 MG, UNK
     Route: 040
     Dates: start: 20170104
  8. LEUCOVORIN. [Suspect]
     Active Substance: LEUCOVORIN
     Dosage: 280 MG, UNK
     Route: 042
     Dates: start: 20161025
  9. LEUCOVORIN. [Suspect]
     Active Substance: LEUCOVORIN
     Dosage: 280 MG, UNK
     Route: 042
     Dates: start: 20161213
  10. 5-FU [Suspect]
     Active Substance: FLUOROURACIL
     Dosage: 820.8 MG, UNK
     Route: 042
     Dates: start: 20161108
  11. OXALIPLATIN. [Suspect]
     Active Substance: OXALIPLATIN
     Indication: COLON CANCER
     Dosage: UNK
     Route: 042
     Dates: start: 201511, end: 201604
  12. OXALIPLATIN. [Suspect]
     Active Substance: OXALIPLATIN
     Indication: METASTASES TO LIVER
     Dosage: UNK
     Route: 042
     Dates: start: 20161011
  13. DOXYCYCLIN [Suspect]
     Active Substance: DOXYCYCLINE
     Indication: PROPHYLAXIS
     Dosage: 100 MG, QD (1/0/0)
     Route: 048
  14. VECTIBIX [Suspect]
     Active Substance: PANITUMUMAB
     Dosage: 376 MG, UNK
     Route: 042
     Dates: start: 20161122
  15. 5-FU [Suspect]
     Active Substance: FLUOROURACIL
     Dosage: 547 MG, UNK
     Route: 040
     Dates: start: 20161108
  16. OXALIPLATIN. [Suspect]
     Active Substance: OXALIPLATIN
     Dosage: 115.6 MG, UNK
     Route: 042
     Dates: start: 20161025
  17. OXALIPLATIN. [Suspect]
     Active Substance: OXALIPLATIN
     Dosage: 116 MG, UNK
     Route: 042
     Dates: start: 20161108
  18. OXALIPLATIN. [Suspect]
     Active Substance: OXALIPLATIN
     Dosage: 116 MG, UNK
     Route: 042
     Dates: start: 20161122
  19. EXCIPIAL [Concomitant]
  20. VECTIBIX [Suspect]
     Active Substance: PANITUMUMAB
     Indication: COLON CANCER
     Dosage: 6 MG/KG, UNK
     Route: 042
     Dates: start: 201511, end: 201604
  21. VECTIBIX [Suspect]
     Active Substance: PANITUMUMAB
     Dosage: 320.8 MG, UNK
     Route: 042
     Dates: start: 20161025
  22. VECTIBIX [Suspect]
     Active Substance: PANITUMUMAB
     Dosage: 373 MG, UNK
     Route: 042
     Dates: start: 20161108
  23. LEUCOVORIN. [Suspect]
     Active Substance: LEUCOVORIN
     Dosage: 280 MG, UNK
     Route: 042
     Dates: start: 20170104
  24. 5-FU [Suspect]
     Active Substance: FLUOROURACIL
     Indication: METASTASES TO LIVER
     Dosage: UNK
     Route: 042
     Dates: start: 20161011
  25. 5-FU [Suspect]
     Active Substance: FLUOROURACIL
     Dosage: 816 MG, UNK
     Route: 042
     Dates: start: 20161025
  26. 5-FU [Suspect]
     Active Substance: FLUOROURACIL
     Dosage: 820.8 MG, UNK
     Route: 042
     Dates: start: 20161122
  27. OXALIPLATIN. [Suspect]
     Active Substance: OXALIPLATIN
     Dosage: 117 MG, UNK
     Route: 042
     Dates: start: 20170104
  28. FORTECORTIN [Concomitant]
     Active Substance: DEXAMETHASONE
     Dosage: 1-0-0 D2-D3
  29. VECTIBIX [Suspect]
     Active Substance: PANITUMUMAB
     Indication: METASTASES TO LIVER
     Dosage: UNK
     Route: 042
     Dates: start: 20161011
  30. 5-FU [Suspect]
     Active Substance: FLUOROURACIL
     Dosage: 547 MG, UNK
     Route: 040
     Dates: start: 20161213
  31. 5-FU [Suspect]
     Active Substance: FLUOROURACIL
     Dosage: 830 MG, UNK
     Route: 042
     Dates: start: 20170104
  32. ZOFRAN [Concomitant]
     Active Substance: ONDANSETRON HYDROCHLORIDE
     Dosage: 8 MG, QD (1-0-0 D2-D3)
  33. DERMOVATE [Concomitant]
     Active Substance: CLOBETASOL
  34. ERYAKNEN [Concomitant]
     Dosage: 4 %, UNK
  35. DIBONDRIN [Concomitant]
     Active Substance: DIPHENHYDRAMINE HYDROCHLORIDE
  36. LEUCOVORIN. [Suspect]
     Active Substance: LEUCOVORIN
     Indication: COLON CANCER
     Dosage: UNK
     Route: 042
     Dates: start: 201511, end: 201604
  37. 5-FU [Suspect]
     Active Substance: FLUOROURACIL
     Dosage: 544 MG, UNK
     Route: 040
     Dates: start: 20161025
  38. PASPERTIN [Concomitant]
     Active Substance: METOCLOPRAMIDE HYDROCHLORIDE
     Dosage: UNK UNK, AS NECESSARY
  39. LEUCOVORIN. [Suspect]
     Active Substance: LEUCOVORIN
     Dosage: 280 MG, UNK
     Route: 042
     Dates: start: 20161108
  40. 5-FU [Suspect]
     Active Substance: FLUOROURACIL
     Dosage: 820.8 MG, UNK
     Route: 042
     Dates: start: 20161213

REACTIONS (6)
  - Rash [Recovered/Resolved]
  - Nasopharyngitis [Unknown]
  - Thrombocytopenia [Unknown]
  - Skin bacterial infection [Unknown]
  - Disease progression [Unknown]
  - Skin reaction [Unknown]

NARRATIVE: CASE EVENT DATE: 201610
